FAERS Safety Report 23158480 (Version 1)
Quarter: 2023Q4

REPORT INFORMATION
  Report Type: Spontaneous
  Country: None (occurrence: CN)
  Receive Date: 20231108
  Receipt Date: 20231108
  Transmission Date: 20240109
  Serious: Yes (Other)
  Sender: FDA-Public Use
  Company Number: CN-Jiangsu Hansoh Pharmaceutical Co., Ltd-2147965

PATIENT
  Age: 60 Year
  Sex: Male
  Weight: 52 kg

DRUGS (1)
  1. GEMCITABINE [Suspect]
     Active Substance: GEMCITABINE
     Indication: Bladder cancer stage 0, with cancer in situ
     Route: 041
     Dates: start: 20231023, end: 20231023

REACTIONS (3)
  - Hiccups [Recovered/Resolved]
  - Dizziness [Recovered/Resolved]
  - Rash [Recovering/Resolving]

NARRATIVE: CASE EVENT DATE: 20231023
